FAERS Safety Report 14467209 (Version 1)
Quarter: 2018Q1

REPORT INFORMATION
  Report Type: Spontaneous
  Country: US (occurrence: US)
  Receive Date: 20180130
  Receipt Date: 20180130
  Transmission Date: 20180509
  Serious: Yes (Hospitalization)
  Sender: FDA-Public Use
  Company Number: None

PATIENT
  Age: 11 Month
  Sex: Female

DRUGS (11)
  1. VIOS [Concomitant]
  2. CLONAZEPAM ODT [Concomitant]
     Active Substance: CLONAZEPAM
  3. DESMOPRESSIN [Concomitant]
     Active Substance: DESMOPRESSIN
  4. ALBUTEROL. [Concomitant]
     Active Substance: ALBUTEROL
  5. ACTHREL [Concomitant]
     Active Substance: CORTICORELIN OVINE TRIFLUTATE
  6. RANITIDINE. [Concomitant]
     Active Substance: RANITIDINE
  7. BACTRIM [Concomitant]
     Active Substance: SULFAMETHOXAZOLE\TRIMETHOPRIM
  8. VITAMIN D3 [Concomitant]
     Active Substance: CHOLECALCIFEROL
  9. VIGABATRIN 500MG [Suspect]
     Active Substance: VIGABATRIN
     Indication: MUSCLE SPASMS
     Dosage: 600 MG, TWICE DAILY, VIA G-TUBE
     Dates: start: 20171004
  10. VIGABATRIN 500MG [Suspect]
     Active Substance: VIGABATRIN
     Indication: EPILEPSY
     Dosage: 600 MG, TWICE DAILY, VIA G-TUBE
     Dates: start: 20171004
  11. GLYCOPYRROL [Concomitant]

REACTIONS (1)
  - Respiratory distress [None]

NARRATIVE: CASE EVENT DATE: 20180127
